FAERS Safety Report 11266249 (Version 1)
Quarter: 2015Q2

REPORT INFORMATION
  Report Type: Spontaneous
  Country: US (occurrence: None)
  Receive Date: 20150625
  Receipt Date: 20150625
  Transmission Date: 20150821
  Serious: Yes (Hospitalization)
  Sender: FDA-Public Use
  Company Number: PHEH2015US006843

PATIENT
  Age: 83 Year
  Sex: Female
  Weight: 48.1 kg

DRUGS (1)
  1. AFINITOR [Suspect]
     Active Substance: EVEROLIMUS
     Indication: BREAST CANCER
     Route: 048
     Dates: start: 20150325

REACTIONS (2)
  - Drug hypersensitivity [None]
  - Epistaxis [None]

NARRATIVE: CASE EVENT DATE: 20150404
